FAERS Safety Report 6703245-0 (Version None)
Quarter: 2010Q2

REPORT INFORMATION
  Report Type: 
  Country: None (occurrence: None)
  Receive Date: 20100430
  Receipt Date: 20100419
  Transmission Date: 20101027
  Serious: Yes (Hospitalization)
  Sender: FDA-Public Use
  Company Number: US-TEVA-231789USA

PATIENT
  Sex: Male

DRUGS (1)
  1. AZITHROMYCIN 600MG TABLET [Suspect]
     Indication: PNEUMONIA
     Route: 048

REACTIONS (13)
  - ABNORMAL BEHAVIOUR [None]
  - ASTHENIA [None]
  - BLOOD PRESSURE DECREASED [None]
  - CHROMATURIA [None]
  - DELUSION [None]
  - DIARRHOEA [None]
  - DYSKINESIA [None]
  - DYSPNOEA [None]
  - DYSSTASIA [None]
  - FEELING COLD [None]
  - GAIT DISTURBANCE [None]
  - THINKING ABNORMAL [None]
  - TREMOR [None]
